FAERS Safety Report 7928115 (Version 3)
Quarter: 2013Q2

REPORT INFORMATION
  Report Type: Report from Study
  Country: CA (occurrence: CA)
  Receive Date: 20110503
  Receipt Date: 20130524
  Transmission Date: 20140414
  Serious: Yes (Other)
  Sender: FDA-Public Use
  Company Number: PHHY2011CA33192

PATIENT
  Sex: Male

DRUGS (9)
  1. CLOZARIL [Suspect]
     Indication: SCHIZOPHRENIA
     Dosage: 325 MG, QHS
     Route: 048
     Dates: start: 20110311
  2. SERTRALINE [Concomitant]
     Dosage: 50 MG, UNK
  3. BUPROPION [Concomitant]
     Dosage: 300 MG, UNK
  4. QUETIAPINE [Concomitant]
     Dosage: 150 MG, UNK
  5. CITALOPRAM [Concomitant]
     Dosage: 60 MG, UNK
  6. FLUOXETINE [Concomitant]
     Dosage: 40 MG, UNK
  7. ADVAIR [Concomitant]
     Dosage: TWO PUFFS A DAY
  8. SPIRIVA [Concomitant]
     Dosage: 18 UG, UNK
  9. CLONAZEPAM [Concomitant]
     Dosage: 1.5 MG, UNK

REACTIONS (1)
  - Prostate cancer [Recovered/Resolved]
